FAERS Safety Report 10658895 (Version 2)
Quarter: 2014Q4

REPORT INFORMATION
  Report Type: Spontaneous
  Country: US (occurrence: US)
  Receive Date: 20141217
  Receipt Date: 20141217
  Transmission Date: 20150529
  Serious: No
  Sender: FDA-Public Use
  Company Number: US-GLAXOSMITHKLINE-A1073021A

PATIENT

DRUGS (3)
  1. BLOOD PRESSURE MEDICATION [Concomitant]
     Active Substance: UNSPECIFIED INGREDIENT
  2. VOTRIENT [Suspect]
     Active Substance: PAZOPANIB HYDROCHLORIDE
     Indication: RENAL CELL CARCINOMA
     Dosage: DISCONTINUED 22 APIRL 2014, RESTARTED 05 MAY 2014 AT HALF DAILY DOSAGE, DISCONTINUED 30 MAY 2014.
     Route: 065
     Dates: start: 20140303, end: 20140526
  3. VOTRIENT [Suspect]
     Active Substance: PAZOPANIB HYDROCHLORIDE
     Dates: start: 20140303, end: 20140526

REACTIONS (22)
  - Nausea [Unknown]
  - Abdominal pain [Not Recovered/Not Resolved]
  - Flatulence [Unknown]
  - Blood glucose decreased [Recovering/Resolving]
  - Blood test abnormal [Unknown]
  - Diarrhoea [Recovering/Resolving]
  - Nasopharyngitis [Unknown]
  - Increased appetite [Unknown]
  - Weight decreased [Unknown]
  - Abdominal distension [Not Recovered/Not Resolved]
  - Blood pressure increased [Unknown]
  - Malaise [Unknown]
  - Myalgia [Unknown]
  - Pain in extremity [Unknown]
  - Abdominal pain upper [Unknown]
  - Fatigue [Unknown]
  - Epistaxis [Unknown]
  - Hepatic enzyme increased [Recovered/Resolved]
  - Liver function test abnormal [Unknown]
  - Back pain [Unknown]
  - Hair colour changes [Unknown]
  - Adverse drug reaction [Unknown]

NARRATIVE: CASE EVENT DATE: 201403
